FAERS Safety Report 9254790 (Version 2)
Quarter: 2013Q2

REPORT INFORMATION
  Report Type: Spontaneous
  Country: US (occurrence: US)
  Receive Date: 20130425
  Receipt Date: 20130502
  Transmission Date: 20140414
  Serious: No
  Sender: FDA-Public Use
  Company Number: US-PFIZER INC-2013129209

PATIENT
  Age: 57 Year
  Sex: Female
  Weight: 109 kg

DRUGS (4)
  1. LYRICA [Suspect]
     Indication: FIBROMYALGIA
     Dosage: 50 MG, 3X/DAY
     Dates: start: 2011
  2. EFFEXOR XR [Suspect]
     Indication: FIBROMYALGIA
     Dosage: 150 MG, 3X/DAY
     Dates: start: 2011
  3. DIOVAN [Concomitant]
     Indication: HYPERTENSION
     Dosage: 12.5/120 MG, 1X/DAY
  4. TOPAMAX [Concomitant]
     Indication: MIGRAINE
     Dosage: 50 MG, 3X/DAY

REACTIONS (2)
  - Influenza [Recovering/Resolving]
  - Off label use [Unknown]
